FAERS Safety Report 6825799-6 (Version None)
Quarter: 2010Q3

REPORT INFORMATION
  Report Type: 
  Country: None (occurrence: None)
  Receive Date: 20100709
  Receipt Date: 20100706
  Transmission Date: 20110219
  Serious: No
  Sender: FDA-Public Use
  Company Number: US-BIOGENIDEC-2010BI022521

PATIENT
  Age: 47 Year
  Sex: Female

DRUGS (4)
  1. AVONEX [Suspect]
     Indication: MULTIPLE SCLEROSIS
     Route: 030
  2. AVONEX [Suspect]
     Route: 030
     Dates: start: 19970101
  3. AVONEX [Suspect]
     Route: 030
  4. AVONEX [Suspect]
     Route: 030
     Dates: end: 20060101

REACTIONS (5)
  - DYSPHONIA [None]
  - INFLUENZA LIKE ILLNESS [None]
  - INJECTION SITE PAIN [None]
  - INSOMNIA [None]
  - PYREXIA [None]
